FAERS Safety Report 15417357 (Version 1)
Quarter: 2018Q3

REPORT INFORMATION
  Report Type: Spontaneous
  Country: US (occurrence: US)
  Receive Date: 20180924
  Receipt Date: 20180924
  Transmission Date: 20181010
  Serious: Yes (Other)
  Sender: FDA-Public Use
  Company Number: US-ACCORD-072548

PATIENT
  Sex: Female
  Weight: 165 kg

DRUGS (13)
  1. SPIRONOLACTONE. [Suspect]
     Active Substance: SPIRONOLACTONE
     Indication: SWELLING
  2. TACROLIMUS. [Suspect]
     Active Substance: TACROLIMUS
     Indication: PANCREAS TRANSPLANT
     Route: 048
     Dates: start: 201608
  3. FUROSEMIDE. [Suspect]
     Active Substance: FUROSEMIDE
     Indication: PRODUCT USED FOR UNKNOWN INDICATION
     Dosage: 20 MG/ORAL/DAILY
     Route: 048
  4. MAGNESIUM OXIDE. [Concomitant]
     Active Substance: MAGNESIUM OXIDE
     Dosage: 400MG /ORAL/ONCE DAY
     Route: 048
  5. HYDROCHLOROTHIAZIDE. [Suspect]
     Active Substance: HYDROCHLOROTHIAZIDE
     Indication: SWELLING
  6. CALCIUM CITRATE/VITAMIN D NOS [Concomitant]
     Dosage: 3 TABLETS /THREE TIMES A DAY
  7. BRIMONIDINE [Concomitant]
     Active Substance: BRIMONIDINE TARTRATE
     Dosage: 0.15%/DROP/LEFT EYE ONLY/TWICE DAILY
  8. PREDNISONE. [Concomitant]
     Active Substance: PREDNISONE
     Dosage: 5MG/ORAL/ONCE DAILY
     Route: 048
  9. FLUOXETINE [Concomitant]
     Active Substance: FLUOXETINE HYDROCHLORIDE
     Route: 048
  10. LOTEPREDNOL [Concomitant]
     Active Substance: LOTEPREDNOL
     Dosage: 0.5%/SUSPENSION/LEFT EYE ONLY /ONCE PER DAY
  11. MYCOPHENOLIC ACID. [Concomitant]
     Active Substance: MYCOPHENOLIC ACID
     Dosage: 250MG /THREE TABLETS /TWICE A DAY
  12. ACETYLSALICYLIC ACID [Concomitant]
     Active Substance: ASPIRIN
     Route: 048
  13. ATENOLOL. [Concomitant]
     Active Substance: ATENOLOL
     Dosage: 0.5%/SOLUTION/LEFT EYE TWICE A DAY

REACTIONS (13)
  - Blood parathyroid hormone increased [Unknown]
  - Headache [Recovered/Resolved]
  - Abdominal discomfort [Recovered/Resolved]
  - Balance disorder [Recovered/Resolved]
  - Product packaging issue [Unknown]
  - Gait disturbance [Recovered/Resolved]
  - Blood creatine increased [Recovered/Resolved]
  - Urine calcium increased [Recovered/Resolved]
  - Swelling [Recovered/Resolved]
  - Drug level fluctuating [Unknown]
  - Fatigue [Recovered/Resolved]
  - Wrong drug administered [Unknown]
  - Hyperhidrosis [Recovered/Resolved]
